FAERS Safety Report 16065376 (Version 1)
Quarter: 2019Q1

REPORT INFORMATION
  Report Type: Other
  Country: NL (occurrence: NL)
  Receive Date: 20190313
  Receipt Date: 20190313
  Transmission Date: 20190418
  Serious: Yes (Other)
  Sender: FDA-Public Use
  Company Number: NL-APOTEX-2019AP009057

PATIENT
  Age: 69 Year
  Sex: Female
  Weight: 86 kg

DRUGS (8)
  1. PARACETAMOL A [Concomitant]
     Active Substance: ACETAMINOPHEN
     Indication: PRODUCT USED FOR UNKNOWN INDICATION
     Dosage: 1 DF, UNK,(1DD (Z.N.) TABLET)
     Route: 065
  2. IBEROGAST [Concomitant]
     Active Substance: HERBALS
     Dosage: 1 DF, UNK,(1DD (Z.N.) DROPS)
     Route: 065
  3. AMLODIPINE [Concomitant]
     Active Substance: AMLODIPINE BESYLATE
     Indication: PRODUCT USED FOR UNKNOWN INDICATION
     Dosage: 1 DF, UNK,(1DD TABLET)
     Route: 065
  4. CANNABIDIOL [Concomitant]
     Active Substance: CANNABIDIOL
     Indication: PRODUCT USED FOR UNKNOWN INDICATION
     Dosage: 2 DF, UNK,(2DD (Z.N.) DROPS)
     Route: 065
  5. NEURASTON [Concomitant]
     Indication: PRODUCT USED FOR UNKNOWN INDICATION
     Dosage: 1 DF, UNK,(2DD 20-50 DROPS (Z.N.))
     Route: 065
  6. LOSARTAN. [Suspect]
     Active Substance: LOSARTAN
     Indication: HYPERTENSION
     Dosage: 50 MG, QD,(1DD1T)
     Route: 065
     Dates: start: 201901, end: 201901
  7. OXAZEPAM. [Concomitant]
     Active Substance: OXAZEPAM
     Indication: PRODUCT USED FOR UNKNOWN INDICATION
     Dosage: 1 DF, Q.12H,(2DD TABLET)
     Route: 065
  8. TASECTAN [Concomitant]
     Active Substance: GELATIN
     Indication: PRODUCT USED FOR UNKNOWN INDICATION
     Dosage: 1 DF, UNK,(1DD (Z.N.) CAPSULE)
     Route: 065

REACTIONS (1)
  - Renal failure [Recovered/Resolved]
